FAERS Safety Report 6200441-6 (Version None)
Quarter: 2009Q2

REPORT INFORMATION
  Report Type: 
  Country: None (occurrence: None)
  Receive Date: 20090522
  Receipt Date: 20090508
  Transmission Date: 20091009
  Serious: Yes (Death, Congenital Anomaly)
  Sender: FDA-Public Use
  Company Number: GB-GENENTECH-236408

PATIENT
  Sex: Female
  Weight: 2.7 kg

DRUGS (5)
  1. HERCEPTIN [Suspect]
     Indication: BREAST CANCER
     Dosage: 441 MG, Q3W
     Route: 064
     Dates: end: 20060725
  2. HERCEPTIN [Suspect]
     Dosage: 588 MG, SINGLE
  3. TAMOXIFEN CITRATE [Suspect]
     Indication: BREAST CANCER
     Dosage: UNK
     Route: 064
  4. ZOLADEX [Suspect]
     Indication: BREAST CANCER
     Dosage: UNK
     Route: 064
  5. CHEMOTHERAPY (UNK INGREDIENTS) [Concomitant]
     Indication: DRUG USE FOR UNKNOWN INDICATION
     Dates: start: 20050515, end: 20050915

REACTIONS (1)
  - PULMONARY HYPOPLASIA [None]
